FAERS Safety Report 9688812 (Version 1)
Quarter: 2013Q4

REPORT INFORMATION
  Report Type: Spontaneous
  Country: US (occurrence: US)
  Receive Date: 20131114
  Receipt Date: 20131114
  Transmission Date: 20140711
  Serious: Yes (Other)
  Sender: FDA-Public Use
  Company Number: US-BAYER-2013-138593

PATIENT
  Age: 17 Year
  Sex: Female
  Weight: 83.63 kg

DRUGS (5)
  1. YAZ [Suspect]
  2. BUPROPION [Concomitant]
     Dosage: UNK
     Dates: start: 20080313, end: 20090805
  3. AMPHETAMINE SALTS [Concomitant]
     Dosage: UNK
     Dates: start: 20090603, end: 20091204
  4. WELLBUTRIN XL [Concomitant]
  5. ADDERALL XR [Concomitant]

REACTIONS (1)
  - Deep vein thrombosis [None]
